FAERS Safety Report 6882212-0 (Version None)
Quarter: 2010Q3

REPORT INFORMATION
  Report Type: 
  Country: None (occurrence: None)
  Receive Date: 20100729
  Receipt Date: 20100723
  Transmission Date: 20110219
  Serious: Yes (Hospitalization, Other)
  Sender: FDA-Public Use
  Company Number: US-ELI_LILLY_AND_COMPANY-US200910005603

PATIENT
  Sex: Male
  Weight: 106.58 kg

DRUGS (4)
  1. BYETTA [Suspect]
     Dosage: UNK, UNKNOWN
     Route: 065
     Dates: start: 20060814, end: 20080505
  2. GLIMEPIRIDE [Concomitant]
     Dates: start: 20060101, end: 20080713
  3. JANUVIA [Concomitant]
     Dates: start: 20080312, end: 20080814
  4. LANTUS [Concomitant]
     Dates: start: 20080721, end: 20100211

REACTIONS (7)
  - BILIARY TRACT DISORDER [None]
  - CHOLELITHIASIS [None]
  - LEUKAEMIA [None]
  - OFF LABEL USE [None]
  - PANCREATIC CARCINOMA [None]
  - PANCREATITIS ACUTE [None]
  - RENAL FAILURE [None]
